FAERS Safety Report 8459846-5 (Version None)
Quarter: 2012Q2

REPORT INFORMATION
  Report Type: 
  Country: None (occurrence: None)
  Receive Date: 20120622
  Receipt Date: 20120615
  Transmission Date: 20120825
  Serious: Yes (Other)
  Sender: FDA-Public Use
  Company Number: PHEH2012US008506

PATIENT
  Sex: Male

DRUGS (5)
  1. LAMICTAL [Concomitant]
  2. RISPERDAL [Concomitant]
  3. AFINITOR [Suspect]
     Indication: TUBEROUS SCLEROSIS
     Dosage: 2.5 MG, UNK
     Route: 048
     Dates: start: 20120324
  4. DIASTAT [Concomitant]
  5. AFINITOR [Suspect]
     Indication: ASTROCYTOMA, LOW GRADE
     Dosage: 5 MG, DAILY

REACTIONS (4)
  - AGGRESSION [None]
  - GRAND MAL CONVULSION [None]
  - CONVULSION [None]
  - DRUG LEVEL DECREASED [None]
